FAERS Safety Report 10646801 (Version 1)
Quarter: 2014Q4

REPORT INFORMATION
  Report Type: Spontaneous
  Country: US (occurrence: None)
  Receive Date: 20141205
  Receipt Date: 20141205
  Transmission Date: 20150529
  Serious: No
  Sender: FDA-Public Use
  Company Number: 163-POMAL-14093966

PATIENT
  Age: 66 Year
  Sex: Female
  Weight: 89.36 kg

DRUGS (13)
  1. MUCINEX (GUAIFENESIN) [Concomitant]
  2. POMALYST [Suspect]
     Active Substance: POMALIDOMIDE
     Indication: PLASMA CELL MYELOMA
     Dosage: 4 MG, 21 IN 21 D, PO
     Route: 048
     Dates: start: 20140226
  3. CALCIUM (CALCIUM) [Concomitant]
     Active Substance: CALCIUM
  4. MULTIVITAMINS (ERGOCALCIFEROL, ASCORBIC ACID, FOLIC ACID, THIAMINE HYDROCHLORIDE, RETINOL, RIBOFLAVIN, NICOTINAMIDE, PANTHENOL) [Concomitant]
  5. VITAMIN D (VITAMIN D NOS) [Concomitant]
  6. SIMVASTATIN (SIMVASTATIN) [Concomitant]
     Active Substance: SIMVASTATIN
  7. ALLERGA (FEXOFENADINE HYDROCHLORIDE) [Concomitant]
  8. HYDROCODONE-ACETAMINOPHEN (PARACETAMOL, HYDROCODONE BITARTRATE) [Concomitant]
  9. LYRICA [Concomitant]
     Active Substance: PREGABALIN
  10. DETROL (TOLTERODINE L-TARTRATE) [Concomitant]
  11. HYDROCHLOROTHIAZIDE (HYDROCHLOROTHIAZIDE) [Concomitant]
     Active Substance: HYDROCHLOROTHIAZIDE
  12. IMIPRAMINE HCL (IMIPRAMINE HYDROCHLORIDE) [Concomitant]
  13. SENNA LAX (SENNOSIDE A+B) [Concomitant]

REACTIONS (1)
  - Dysuria [None]

NARRATIVE: CASE EVENT DATE: 2014
